FAERS Safety Report 4983583-2 (Version None)
Quarter: 2006Q2

REPORT INFORMATION
  Report Type: 
  Country: None (occurrence: None)
  Receive Date: 20060426
  Receipt Date: 20060417
  Transmission Date: 20061013
  Serious: Yes (Death)
  Sender: FDA-Public Use
  Company Number: TR-BRISTOL-MYERS SQUIBB COMPANY-13348917

PATIENT
  Age: 19 Month
  Sex: Female

DRUGS (3)
  1. CARBOPLATIN [Suspect]
     Indication: BRAIN NEOPLASM MALIGNANT
  2. LOMUSTINE [Suspect]
     Indication: BRAIN NEOPLASM MALIGNANT
  3. VINCRISTINE [Suspect]
     Indication: BRAIN NEOPLASM MALIGNANT

REACTIONS (9)
  - ASCITES [None]
  - GASTROINTESTINAL HAEMORRHAGE [None]
  - HEPATIC VEIN THROMBOSIS [None]
  - HEPATOMEGALY [None]
  - MUCOSAL ULCERATION [None]
  - PNEUMONIA [None]
  - PYREXIA [None]
  - RECTAL HAEMORRHAGE [None]
  - RESPIRATORY DISTRESS [None]
